FAERS Safety Report 7243463-9 (Version None)
Quarter: 2011Q1

REPORT INFORMATION
  Report Type: 
  Country: None (occurrence: None)
  Receive Date: 20110119
  Receipt Date: 20110119
  Transmission Date: 20110831
  Serious: Yes (Other)
  Sender: FDA-Public Use
  Company Number: None

PATIENT
  Sex: Female
  Weight: 129.2752 kg

DRUGS (1)
  1. FENTANYL [Suspect]
     Indication: INTERVERTEBRAL DISC PROTRUSION
     Dosage: 1 PATCH GIVEN IN E.R. 1 EVERY 3 DAYS TRANSDERMAL
     Route: 062
     Dates: start: 20110115, end: 20110117

REACTIONS (9)
  - OEDEMA PERIPHERAL [None]
  - EYE SWELLING [None]
  - WRONG TECHNIQUE IN DRUG USAGE PROCESS [None]
  - APPLICATION SITE PRURITUS [None]
  - PYREXIA [None]
  - APPLICATION SITE REACTION [None]
  - DYSPNOEA [None]
  - APPLICATION SITE INFLAMMATION [None]
  - SWELLING FACE [None]
